FAERS Safety Report 19751094 (Version 2)
Quarter: 2021Q3

REPORT INFORMATION
  Report Type: Report from Study
  Country: CA (occurrence: CA)
  Receive Date: 20210826
  Receipt Date: 20210831
  Transmission Date: 20211014
  Serious: Yes (Hospitalization, Other)
  Sender: FDA-Public Use
  Company Number: CA-HLS-202108147

PATIENT
  Age: 70 Year
  Sex: Male

DRUGS (1)
  1. CLOZARIL [Suspect]
     Active Substance: CLOZAPINE
     Indication: PRODUCT USED FOR UNKNOWN INDICATION
     Route: 048
     Dates: start: 20090915

REACTIONS (5)
  - Judgement impaired [Unknown]
  - Leukopenia [Unknown]
  - Neutrophil count [Unknown]
  - Infection [Unknown]
  - Prostatitis [Unknown]

NARRATIVE: CASE EVENT DATE: 20210820
